FAERS Safety Report 5777092-0 (Version None)
Quarter: 2008Q2

REPORT INFORMATION
  Report Type: 
  Country: None (occurrence: None)
  Receive Date: 20080617
  Receipt Date: 20080617
  Transmission Date: 20081010
  Serious: Yes (Death)
  Sender: FDA-Public Use
  Company Number: None

PATIENT
  Age: 58 Year
  Sex: Female

DRUGS (7)
  1. ALLOPURINOL [Suspect]
     Indication: GOUT
     Dosage: 300MG PO QD/100MG PO QD
     Route: 048
     Dates: start: 20080325, end: 20080414
  2. ALLOPURINOL [Suspect]
     Indication: GOUT
     Dosage: 300MG PO QD/100MG PO QD
     Route: 048
     Dates: start: 20080417, end: 20080419
  3. CLOFARABINE [Suspect]
     Indication: ACUTE MYELOID LEUKAEMIA
     Dosage: 70MG IV QD
     Route: 042
     Dates: start: 20080417, end: 20080419
  4. CYTARABINE [Concomitant]
  5. VORICONAZOLE [Concomitant]
  6. ZOSYN [Concomitant]
  7. DILTIAZEM HCL [Concomitant]

REACTIONS (1)
  - TOXIC EPIDERMAL NECROLYSIS [None]
